FAERS Safety Report 5531371-0 (Version None)
Quarter: 2007Q4

REPORT INFORMATION
  Report Type: 
  Country: None (occurrence: None)
  Receive Date: 20071128
  Receipt Date: 20071116
  Transmission Date: 20080405
  Serious: Yes (Other)
  Sender: FDA-Public Use
  Company Number: GXKR2007GB09892

PATIENT
  Sex: Male

DRUGS (2)
  1. TRAMADOL HCL [Suspect]
     Dosage: 100 MG, QID
  2. BUPRENORPHINE HCL [Suspect]
     Indication: ANALGESIA
     Dosage: 5 UG,1/1 HOUR, TRANSDERMAL
     Route: 062

REACTIONS (2)
  - PARALYSIS [None]
  - SOMNOLENCE [None]
